FAERS Safety Report 5652374-1 (Version None)
Quarter: 2008Q1

REPORT INFORMATION
  Report Type: 
  Country: None (occurrence: None)
  Receive Date: 20080305
  Receipt Date: 20080305
  Transmission Date: 20080703
  Serious: No
  Sender: FDA-Public Use
  Company Number: None

PATIENT
  Sex: Female

DRUGS (1)
  1. NAPROXEN [Suspect]

REACTIONS (4)
  - ABDOMINAL PAIN [None]
  - BACK PAIN [None]
  - LIVER FUNCTION TEST ABNORMAL [None]
  - PROTHROMBIN TIME PROLONGED [None]
